FAERS Safety Report 25250727 (Version 1)
Quarter: 2025Q2

REPORT INFORMATION
  Report Type: Report from Study
  Country: US (occurrence: US)
  Receive Date: 20250429
  Receipt Date: 20250429
  Transmission Date: 20250716
  Serious: Yes (Hospitalization, Other)
  Sender: GILEAD
  Company Number: US-GILEAD-2025-0711867

PATIENT
  Age: 72 Year
  Sex: Female

DRUGS (23)
  1. AMBRISENTAN [Suspect]
     Active Substance: AMBRISENTAN
     Indication: Pulmonary arterial hypertension
     Dosage: 10 MG, QD
     Route: 048
     Dates: start: 20240223
  2. AMPHETAMINE [Concomitant]
     Active Substance: AMPHETAMINE
  3. CLONAZEPAM [Concomitant]
     Active Substance: CLONAZEPAM
  4. DEPAKOTE [Concomitant]
     Active Substance: DIVALPROEX SODIUM
  5. ELIQUIS [Concomitant]
     Active Substance: APIXABAN
  6. FLUTICASONE [Concomitant]
     Active Substance: FLUTICASONE
  7. FUROSEMIDE [Concomitant]
     Active Substance: FUROSEMIDE
  8. LITHIUM CARBONATE [Concomitant]
     Active Substance: LITHIUM CARBONATE
  9. LOSARTAN POTASSIUM [Concomitant]
     Active Substance: LOSARTAN POTASSIUM
  10. MONTELUKAST [Concomitant]
     Active Substance: MONTELUKAST
  11. ONDANSETRON [Concomitant]
     Active Substance: ONDANSETRON
  12. ORENITRAM [Concomitant]
     Active Substance: TREPROSTINIL
  13. PANTOPRAZOLE [Concomitant]
     Active Substance: PANTOPRAZOLE
  14. POTASSIUM CHLORIDE [Concomitant]
     Active Substance: POTASSIUM CHLORIDE
  15. PREDNISONE [Concomitant]
     Active Substance: PREDNISONE
  16. PROPRANOLOL [Concomitant]
     Active Substance: PROPRANOLOL HYDROCHLORIDE
  17. PYRIDOSTIGMINE [Concomitant]
     Active Substance: PYRIDOSTIGMINE
  18. RISPERIDONE [Concomitant]
     Active Substance: RISPERIDONE
  19. SYMBICORT [Concomitant]
     Active Substance: BUDESONIDE\FORMOTEROL FUMARATE DIHYDRATE
  20. TADALAFIL [Concomitant]
     Active Substance: TADALAFIL
  21. TEMAZEPAM [Concomitant]
     Active Substance: TEMAZEPAM
  22. TRIAMCINOLONE [Concomitant]
     Active Substance: TRIAMCINOLONE
  23. VENLAFAXINE [Concomitant]
     Active Substance: VENLAFAXINE HYDROCHLORIDE

REACTIONS (1)
  - Pneumonia [Unknown]
